FAERS Safety Report 13526776 (Version 5)
Quarter: 2018Q3

REPORT INFORMATION
  Report Type: Report from Study
  Country: None (occurrence: US)
  Receive Date: 20170509
  Receipt Date: 20180720
  Transmission Date: 20181010
  Serious: Yes (Hospitalization, Other)
  Sender: FDA-Public Use
  Company Number: US-ABBVIE-17K-163-1962869-00

PATIENT
  Sex: Male
  Weight: 88.53 kg

DRUGS (16)
  1. ESOMEPRAZOLE [Concomitant]
     Active Substance: ESOMEPRAZOLE
     Indication: GASTROOESOPHAGEAL REFLUX DISEASE
  2. VITAMIN B12 [Concomitant]
     Active Substance: CYANOCOBALAMIN
     Indication: VITAMIN SUPPLEMENTATION
  3. SAW PALMETTO [Concomitant]
     Active Substance: HERBALS\SAW PALMETTO
     Indication: NUTRITIONAL SUPPLEMENTATION
  4. MELATONIN [Concomitant]
     Active Substance: MELATONIN
     Indication: NUTRITIONAL SUPPLEMENTATION
  5. KLOR?CON [Concomitant]
     Active Substance: POTASSIUM CHLORIDE
     Indication: MINERAL SUPPLEMENTATION
  6. TURMERIC CURCUMIN [Concomitant]
     Active Substance: HERBALS\TURMERIC
     Indication: NUTRITIONAL SUPPLEMENTATION
  7. TINIDAZOLE. [Concomitant]
     Active Substance: TINIDAZOLE
     Indication: CROHN^S DISEASE
  8. METOPROLOL. [Concomitant]
     Active Substance: METOPROLOL
     Indication: HYPERTENSION
  9. NOVOLOG [Concomitant]
     Active Substance: INSULIN ASPART
     Indication: TYPE 2 DIABETES MELLITUS
  10. PAPAYA  ENZYMES [Concomitant]
     Indication: NUTRITIONAL SUPPLEMENTATION
  11. BASAGLAR [Concomitant]
     Active Substance: INSULIN GLARGINE
     Indication: TYPE 2 DIABETES MELLITUS
  12. PINEAPPLE ENZYMES [Concomitant]
     Indication: NUTRITIONAL SUPPLEMENTATION
  13. HUMIRA [Suspect]
     Active Substance: ADALIMUMAB
     Indication: CROHN^S DISEASE
     Route: 058
     Dates: start: 2015
  14. VITAMIN D3 [Concomitant]
     Active Substance: CHOLECALCIFEROL
     Indication: VITAMIN SUPPLEMENTATION
  15. ASPIRIN. [Concomitant]
     Active Substance: ASPIRIN
     Indication: ANTICOAGULANT THERAPY
  16. ATORVASTATIN [Concomitant]
     Active Substance: ATORVASTATIN
     Indication: BLOOD CHOLESTEROL INCREASED

REACTIONS (8)
  - Abdominal adhesions [Recovered/Resolved]
  - Vitamin D deficiency [Unknown]
  - Hip surgery [Unknown]
  - Back pain [Recovered/Resolved]
  - Back pain [Unknown]
  - Vitamin B complex deficiency [Unknown]
  - Neuropathy peripheral [Unknown]
  - Crohn^s disease [Unknown]

NARRATIVE: CASE EVENT DATE: 2015
